FAERS Safety Report 22121536 (Version 1)
Quarter: 2023Q1

REPORT INFORMATION
  Report Type: Spontaneous
  Country: US (occurrence: US)
  Receive Date: 20230321
  Receipt Date: 20230321
  Transmission Date: 20230417
  Serious: No
  Sender: FDA-Public Use
  Company Number: US-DSJP-DSU-2023-110466AA

PATIENT
  Sex: Female

DRUGS (1)
  1. ENHERTU [Suspect]
     Active Substance: FAM-TRASTUZUMAB DERUXTECAN-NXKI
     Indication: HER2 positive breast cancer
     Dosage: UNK
     Route: 065

REACTIONS (6)
  - Walking aid user [Unknown]
  - Fatigue [Unknown]
  - Loss of consciousness [Recovered/Resolved]
  - Hypersomnia [Recovered/Resolved]
  - Therapeutic response unexpected [Unknown]
  - Mental status changes [Unknown]
